FAERS Safety Report 19758580 (Version 1)
Quarter: 2021Q3

REPORT INFORMATION
  Report Type: Spontaneous
  Country: US (occurrence: US)
  Receive Date: 20210827
  Receipt Date: 20210827
  Transmission Date: 20211014
  Serious: No
  Sender: FDA-Public Use
  Company Number: US-SUNOVION-2021SUN003279

PATIENT
  Age: 42 Year
  Sex: Male

DRUGS (4)
  1. AUGMENTIN [Concomitant]
     Active Substance: AMOXICILLIN\CLAVULANATE POTASSIUM
     Indication: SINUSITIS
     Dosage: 875 MG/ 125 MG
     Dates: end: 20210817
  2. KLONOPIN [Concomitant]
     Active Substance: CLONAZEPAM
     Dosage: 1.25 MG, TID
  3. APTIOM [Suspect]
     Active Substance: ESLICARBAZEPINE ACETATE
     Dosage: 400 MG, QD
     Route: 048
  4. DEPAKOTE ER [Concomitant]
     Active Substance: DIVALPROEX SODIUM
     Dosage: 1000 MG, QD

REACTIONS (7)
  - Ageusia [Not Recovered/Not Resolved]
  - Sinusitis [Recovered/Resolved]
  - COVID-19 [Unknown]
  - Urticaria [Not Recovered/Not Resolved]
  - Pyrexia [Unknown]
  - Anosmia [Not Recovered/Not Resolved]
  - Pruritus [Not Recovered/Not Resolved]

NARRATIVE: CASE EVENT DATE: 20210818
